FAERS Safety Report 25853814 (Version 3)
Quarter: 2025Q4

REPORT INFORMATION
  Report Type: Spontaneous
  Country: TW (occurrence: TW)
  Receive Date: 20250926
  Receipt Date: 20251023
  Transmission Date: 20260119
  Serious: Yes (Hospitalization)
  Sender: ELI LILLY AND COMPANY
  Company Number: TW-ELI_LILLY_AND_COMPANY-TW202508020543

PATIENT
  Age: 74 Year
  Sex: Male
  Weight: 100.3 kg

DRUGS (62)
  1. PEMETREXED [Suspect]
     Active Substance: PEMETREXED
     Indication: Non-small cell lung cancer
     Dosage: 500 MG/M2, CYCLICAL
     Route: 042
     Dates: start: 20250428, end: 20250811
  2. PEMBROLIZUMAB [Concomitant]
     Active Substance: PEMBROLIZUMAB
     Indication: Non-small cell lung cancer
     Dosage: 200 MG, CYCLICAL
     Route: 042
     Dates: start: 20250428
  3. CARBOPLATIN [Concomitant]
     Active Substance: CARBOPLATIN
     Indication: Non-small cell lung cancer
     Dosage: 388.3 MG, CYCLICAL
     Route: 042
     Dates: start: 20250519
  4. CISPLATIN [Concomitant]
     Active Substance: CISPLATIN
     Indication: Non-small cell lung cancer
     Dosage: 75 MG/M2, CYCLICAL
     Route: 042
     Dates: start: 20250428, end: 20250428
  5. EURICON [Concomitant]
     Indication: Hyperuricaemia
  6. BISOPROLOL FUMARATE [Concomitant]
     Active Substance: BISOPROLOL FUMARATE
     Indication: Hypertension
  7. BROMAZEPAM [Concomitant]
     Active Substance: BROMAZEPAM
     Indication: Anxiety
  8. LASIX [Concomitant]
     Active Substance: FUROSEMIDE
     Indication: Cardiac failure
  9. ARTELAC COMPLETE [Concomitant]
     Indication: Dry eye
  10. TOTIFEN [KETOTIFEN] [Concomitant]
     Indication: Cataract
  11. XALATAN [Concomitant]
     Active Substance: LATANOPROST
     Indication: Cataract
  12. ALDACTONE [Concomitant]
     Active Substance: SPIRONOLACTONE
     Indication: Cardiac failure
  13. STRESSTAB PLUS IRON [Concomitant]
     Indication: Prophylaxis
  14. PRADAXA [Concomitant]
     Active Substance: DABIGATRAN ETEXILATE MESYLATE
     Indication: Atrial fibrillation
     Dosage: UNK
     Dates: start: 20250916, end: 20250930
  15. DORISON [DEXAMETHASONE] [Concomitant]
     Indication: Prophylaxis
  16. SENNAPUR [Concomitant]
     Indication: Constipation
     Dosage: UNK, UNKNOWN
     Route: 065
  17. HYDROCORTISONE SODIUM SUCCINATE [Concomitant]
     Active Substance: HYDROCORTISONE SODIUM SUCCINATE
     Indication: Anaemia
     Dosage: 100 MG, SINGLE
     Route: 042
     Dates: start: 20250812, end: 20250812
  18. HYDROCORTISONE SODIUM SUCCINATE [Concomitant]
     Active Substance: HYDROCORTISONE SODIUM SUCCINATE
     Indication: Prophylaxis
     Dosage: 100 UNK
     Route: 042
     Dates: start: 20250820, end: 20250820
  19. POTASSIUM CHLORIDE [Concomitant]
     Active Substance: POTASSIUM CHLORIDE
     Indication: Hypokalaemia
     Dosage: UNK
     Dates: start: 20250820, end: 20250822
  20. DIPHENHYDRAMINE HYDROCHLORIDE [Concomitant]
     Active Substance: DIPHENHYDRAMINE HYDROCHLORIDE
     Indication: Prophylaxis
     Dosage: UNK, UNKNOWN
     Route: 065
     Dates: start: 20250904, end: 20250904
  21. DIPHENHYDRAMINE HYDROCHLORIDE [Concomitant]
     Active Substance: DIPHENHYDRAMINE HYDROCHLORIDE
     Dosage: UNK
     Route: 065
     Dates: start: 20250901, end: 20250901
  22. DIPHENHYDRAMINE HYDROCHLORIDE [Concomitant]
     Active Substance: DIPHENHYDRAMINE HYDROCHLORIDE
     Dosage: UNK
     Dates: start: 20250922, end: 20250922
  23. TETRACYCLINE [Concomitant]
     Active Substance: TETRACYCLINE
     Indication: Wound complication
     Dosage: UNK, UNKNOWN
     Route: 065
     Dates: start: 20250829, end: 20250915
  24. MEGEST [MEGESTROL ACETATE] [Concomitant]
     Indication: Decreased appetite
     Dosage: UNK
     Dates: start: 20250902, end: 20251016
  25. PLASBUMIN-25 LOW ALBUMIN [Concomitant]
     Indication: Oedema peripheral
     Dosage: UNK
     Dates: start: 20250902, end: 20250907
  26. LANSOPRAZOLE [Concomitant]
     Active Substance: LANSOPRAZOLE
     Indication: Prophylaxis
     Dosage: UNK
     Dates: start: 20250902, end: 20250912
  27. LANSOPRAZOLE [Concomitant]
     Active Substance: LANSOPRAZOLE
     Indication: Anal haemorrhage
     Dosage: UNK
     Dates: start: 20250916
  28. NINCORT [Concomitant]
     Indication: Candida infection
     Dosage: UNK
     Dates: start: 20250903, end: 20250906
  29. NINCORT [Concomitant]
     Dosage: UNK
     Dates: start: 20250920
  30. MYCOSTATIN [Concomitant]
     Active Substance: NYSTATIN
     Indication: Candida infection
     Dosage: UNK
     Dates: start: 20250904, end: 20250921
  31. MYCOSTATIN [Concomitant]
     Active Substance: NYSTATIN
     Dosage: UNK
     Dates: start: 20250930, end: 20251008
  32. FUROSEMIDE [Concomitant]
     Active Substance: FUROSEMIDE
     Indication: Oedema peripheral
     Dosage: UNK
     Dates: start: 20250904, end: 20250907
  33. TRANSAMIN [Concomitant]
     Active Substance: TRANEXAMIC ACID
     Indication: Haemoptysis
     Dosage: UNK
     Dates: start: 20250907, end: 20250907
  34. TRANSAMIN [Concomitant]
     Active Substance: TRANEXAMIC ACID
     Indication: Anal haemorrhage
     Dosage: UNK
     Dates: start: 20250925, end: 20250930
  35. TRANSAMIN [Concomitant]
     Active Substance: TRANEXAMIC ACID
     Dosage: UNK
     Dates: start: 20251001, end: 20251004
  36. LEVOFLOXACIN [Concomitant]
     Active Substance: LEVOFLOXACIN
     Indication: Pneumocystis jirovecii pneumonia
     Dosage: UNK
     Dates: start: 20250907, end: 20250919
  37. BUMETANIDE [Concomitant]
     Active Substance: BUMETANIDE
     Indication: Prophylaxis
     Dosage: UNK
     Dates: start: 20250907, end: 20250910
  38. SULFAMETHOXAZOLE\TRIMETHOPRIM [Concomitant]
     Active Substance: SULFAMETHOXAZOLE\TRIMETHOPRIM
     Indication: Pneumocystis jirovecii pneumonia
     Dosage: UNK
     Dates: start: 20250908, end: 20250908
  39. SULFAMETHOXAZOLE\TRIMETHOPRIM [Concomitant]
     Active Substance: SULFAMETHOXAZOLE\TRIMETHOPRIM
     Dosage: UNK
     Dates: start: 20250916, end: 20251004
  40. SOLU-MEDROL [Concomitant]
     Active Substance: METHYLPREDNISOLONE SODIUM SUCCINATE
     Indication: Pneumocystis jirovecii pneumonia
     Dosage: 40 MG, THRICE DAILY
     Dates: start: 20250908, end: 20250912
  41. SULFAMETHOXAZOLE\TRIMETHOPRIM [Concomitant]
     Active Substance: SULFAMETHOXAZOLE\TRIMETHOPRIM
     Indication: Pneumocystis jirovecii pneumonia
     Dosage: UNK
     Dates: start: 20250908, end: 20250916
  42. BISACODYL [Concomitant]
     Active Substance: BISACODYL
     Indication: Constipation
     Dosage: UNK
     Dates: start: 20250912, end: 20250914
  43. MAGNESIUM OXIDE [Concomitant]
     Active Substance: MAGNESIUM OXIDE
     Indication: Constipation
     Dosage: UNK
     Dates: start: 20250912
  44. PANTOPRAZOLE SODIUM [Concomitant]
     Active Substance: PANTOPRAZOLE SODIUM
     Indication: Anal haemorrhage
     Dosage: UNK
     Dates: start: 20250913, end: 20250916
  45. SODIUM CHLORIDE [Concomitant]
     Active Substance: SODIUM CHLORIDE
     Indication: Hyponatraemia
     Dosage: UNK
     Dates: start: 20250916, end: 20250917
  46. CALCIUM POLYSTYRENE SULFONATE [Concomitant]
     Active Substance: CALCIUM POLYSTYRENE SULFONATE
     Indication: Hyperkalaemia
     Dosage: UNK
     Dates: start: 20250916, end: 20250917
  47. LACTULOSE [Concomitant]
     Active Substance: LACTULOSE
     Indication: Constipation
     Dosage: UNK
     Dates: start: 20250918, end: 20250919
  48. LACTULOSE [Concomitant]
     Active Substance: LACTULOSE
     Dosage: UNK
     Dates: start: 20250925
  49. SODIUM CHLORIDE [Concomitant]
     Active Substance: SODIUM CHLORIDE
     Indication: Candida infection
     Dosage: UNK
     Dates: start: 20250922
  50. BENAZON [Concomitant]
     Indication: Anal haemorrhage
     Dosage: UNK
     Dates: start: 20250923
  51. MUNDISAL [CHOLINE SALICYLATE] [Concomitant]
     Indication: Candida infection
     Dosage: UNK
     Dates: start: 20250924, end: 20250930
  52. LIDOCAINE HYDROCHLORIDE [Concomitant]
     Active Substance: LIDOCAINE HYDROCHLORIDE
     Indication: Candida infection
     Dosage: UNK
     Dates: start: 20250924
  53. POSULINE [Concomitant]
     Indication: Constipation
     Dosage: UNK
     Dates: start: 20250925
  54. KASCOAL [Concomitant]
     Indication: Constipation
     Dosage: UNK
     Dates: start: 20250926, end: 20251002
  55. ACYCLOVIR [Concomitant]
     Active Substance: ACYCLOVIR
     Indication: Oral herpes
     Dosage: UNK
     Dates: start: 20250927, end: 20251004
  56. BOWKLEAN [Concomitant]
     Indication: Anal haemorrhage
     Dosage: UNK
     Dates: start: 20251002, end: 20251003
  57. XANAX [Concomitant]
     Active Substance: ALPRAZOLAM
     Indication: Prophylaxis
     Dosage: UNK
     Dates: start: 20251001, end: 20251001
  58. MUSCO [Concomitant]
     Indication: Cough
     Dosage: UNK
     Dates: start: 20251002, end: 20251015
  59. DEXTROMETHORPHAN HYDROBROMIDE [Concomitant]
     Active Substance: DEXTROMETHORPHAN HYDROBROMIDE
     Indication: Cough
     Dosage: UNK
     Dates: start: 20251004, end: 20251016
  60. ENOXAPARIN SODIUM [Concomitant]
     Active Substance: ENOXAPARIN SODIUM
     Indication: Embolism
     Dosage: UNK
     Dates: start: 20251008, end: 20251016
  61. DIFLUCAN [Concomitant]
     Active Substance: FLUCONAZOLE
     Indication: Candida infection
     Dosage: UNK
     Dates: start: 20251008, end: 20251013
  62. GANCICLOVIR SODIUM [Concomitant]
     Active Substance: GANCICLOVIR SODIUM
     Indication: Anal haemorrhage
     Dosage: UNK
     Dates: start: 20251008, end: 20251016

REACTIONS (1)
  - Panniculitis [Recovered/Resolved]

NARRATIVE: CASE EVENT DATE: 20250811
